FAERS Safety Report 8800562 (Version 2)
Quarter: 2015Q2

REPORT INFORMATION
  Report Type: Report from Study
  Country: US (occurrence: US)
  Receive Date: 20120921
  Receipt Date: 20150410
  Transmission Date: 20150821
  Serious: Yes (Death)
  Sender: FDA-Public Use
  Company Number: US-ROCHE-1124926

PATIENT
  Age: 54 Year
  Sex: Female

DRUGS (15)
  1. GEMZAR [Concomitant]
     Active Substance: GEMCITABINE HYDROCHLORIDE
  2. CODEINE [Concomitant]
     Active Substance: CODEINE
  3. LEVAQUIN [Concomitant]
     Active Substance: LEVOFLOXACIN
  4. ZOFRAN [Concomitant]
     Active Substance: ONDANSETRON HYDROCHLORIDE
     Route: 042
  5. DECADRON [Concomitant]
     Active Substance: DEXAMETHASONE
     Route: 042
  6. BENADRYL [Concomitant]
     Active Substance: DIPHENHYDRAMINE HYDROCHLORIDE
     Route: 042
  7. AVASTIN [Suspect]
     Active Substance: BEVACIZUMAB
     Indication: LUNG NEOPLASM MALIGNANT
     Route: 042
  8. CARBOPLATIN. [Concomitant]
     Active Substance: CARBOPLATIN
  9. PHENERGAN [Concomitant]
     Active Substance: PROMETHAZINE HYDROCHLORIDE
  10. DOCETAXEL. [Concomitant]
     Active Substance: DOCETAXEL
     Route: 042
  11. AVASTIN [Suspect]
     Active Substance: BEVACIZUMAB
     Route: 042
  12. TARCEVA [Suspect]
     Active Substance: ERLOTINIB HYDROCHLORIDE
     Indication: LUNG NEOPLASM MALIGNANT
     Route: 048
  13. PACLITAXEL. [Concomitant]
     Active Substance: PACLITAXEL
  14. TAGAMET [Concomitant]
     Active Substance: CIMETIDINE
     Route: 042
  15. MEDROL [Concomitant]
     Active Substance: METHYLPREDNISOLONE

REACTIONS (10)
  - Nausea [Recovered/Resolved]
  - Influenza like illness [Recovered/Resolved]
  - Fatigue [Unknown]
  - Death [Fatal]
  - Diarrhoea [Recovered/Resolved]
  - Pain [Unknown]
  - Disease progression [Unknown]
  - Decreased appetite [Unknown]
  - Asthenia [Unknown]
  - Asthma [Recovering/Resolving]

NARRATIVE: CASE EVENT DATE: 20090718
